FAERS Safety Report 7329896-0 (Version None)
Quarter: 2011Q1

REPORT INFORMATION
  Report Type: 
  Country: None (occurrence: None)
  Receive Date: 20110303
  Receipt Date: 20110212
  Transmission Date: 20110831
  Serious: No
  Sender: FDA-Public Use
  Company Number: B0700436A

PATIENT
  Age: 8 Year
  Sex: Male

DRUGS (4)
  1. RELENZA [Suspect]
     Indication: INFLUENZA
     Dosage: 40MG PER DAY
     Route: 055
     Dates: start: 20110212, end: 20110212
  2. CALONAL [Concomitant]
     Route: 065
     Dates: start: 20110212
  3. NAUZELIN [Concomitant]
     Route: 065
     Dates: start: 20110212
  4. TRANSAMIN [Concomitant]
     Route: 065
     Dates: start: 20110212

REACTIONS (2)
  - NO ADVERSE EVENT [None]
  - OVERDOSE [None]
